FAERS Safety Report 13329106 (Version 1)
Quarter: 2017Q1

REPORT INFORMATION
  Report Type: Spontaneous
  Country: US (occurrence: US)
  Receive Date: 20170310
  Receipt Date: 20170310
  Transmission Date: 20170428
  Serious: Yes (Hospitalization)
  Sender: FDA-Public Use
  Company Number: None

PATIENT
  Age: 66 Year
  Sex: Female

DRUGS (1)
  1. IBRANCE [Suspect]
     Active Substance: PALBOCICLIB
     Indication: BREAST CANCER
     Route: 048
     Dates: start: 20161209

REACTIONS (4)
  - Diarrhoea [None]
  - Chest discomfort [None]
  - Abdominal pain upper [None]
  - Decreased appetite [None]

NARRATIVE: CASE EVENT DATE: 20170204
